FAERS Safety Report 5089638-9 (Version None)
Quarter: 2006Q3

REPORT INFORMATION
  Report Type: 
  Country: None (occurrence: None)
  Receive Date: 20060822
  Receipt Date: 20060807
  Transmission Date: 20061208
  Serious: Yes (Disabling, Other)
  Sender: FDA-Public Use
  Company Number: US_000949103

PATIENT
  Age: 39 Year
  Sex: Male
  Weight: 79.5 kg

DRUGS (11)
  1. HUMULIN N [Suspect]
     Indication: DIABETES MELLITUS
     Dosage: 10 U, 2/D, SUBCUTANEOUS
     Route: 058
     Dates: start: 19980101, end: 20040801
  2. INSULIN [Suspect]
     Indication: DIABETES MELLITUS
     Dates: start: 19640101
  3. INSULIN [Suspect]
     Indication: DIABETES MELLITUS
  4. INSULIN [Suspect]
     Indication: DIABETES MELLITUS
  5. HUMULIN (HUMNA INSULIN (RDNA ORIGIN) REGULAR) [Suspect]
     Indication: DIABETES MELLITUS
  6. INSULIN (INSULIN, ANIMAL) VIAL [Suspect]
     Indication: DIABETES MELLITUS
     Dates: start: 19640101
  7. INSULIN [Suspect]
     Indication: DIABETES MELLITUS
  8. HUMALOG [Suspect]
     Indication: DIABETES MELLITUS
     Dosage: AS NEEDED
     Dates: start: 19980101
  9. DEPAKOTE [Concomitant]
  10. NOVOLIN N [Concomitant]
  11. LANTUS [Concomitant]

REACTIONS (17)
  - ABASIA [None]
  - AGITATION [None]
  - APHASIA [None]
  - BLOOD GLUCOSE DECREASED [None]
  - BLOOD GLUCOSE FLUCTUATION [None]
  - BLOOD GLUCOSE INCREASED [None]
  - COMPLEX PARTIAL SEIZURES [None]
  - CONVULSION [None]
  - DRUG TOXICITY [None]
  - DYSPHEMIA [None]
  - EPILEPSY [None]
  - FATIGUE [None]
  - IMMOBILE [None]
  - NERVOUS SYSTEM DISORDER [None]
  - PHARMACEUTICAL PRODUCT COMPLAINT [None]
  - SCAR [None]
  - STRESS [None]
